FAERS Safety Report 6816983-6 (Version None)
Quarter: 2010Q3

REPORT INFORMATION
  Report Type: 
  Country: None (occurrence: None)
  Receive Date: 20100706
  Receipt Date: 20100630
  Transmission Date: 20110219
  Serious: Yes (Death)
  Sender: FDA-Public Use
  Company Number: CH-ASTRAZENECA-2010SE30712

PATIENT
  Age: 84 Year
  Sex: Female

DRUGS (10)
  1. NOLVADEX [Suspect]
     Indication: BREAST CANCER FEMALE
     Route: 048
     Dates: start: 20091201
  2. ZOMETA [Suspect]
     Indication: BONE NEOPLASM MALIGNANT
     Route: 041
     Dates: end: 20091208
  3. MARCUMAR [Concomitant]
     Route: 048
  4. DAFALGAN [Concomitant]
     Route: 048
  5. HEPATODORON [Concomitant]
     Route: 048
     Dates: end: 20091201
  6. ZOLDORM [Concomitant]
     Route: 048
     Dates: end: 20091201
  7. AROMASIN [Concomitant]
     Route: 048
     Dates: end: 20091201
  8. ISCADOR [Concomitant]
     Route: 058
     Dates: end: 20091201
  9. MINALGIN [Concomitant]
     Route: 048
     Dates: end: 20091201
  10. ASSALIX [Concomitant]
     Route: 048
     Dates: end: 20091201

REACTIONS (3)
  - DRUG PRESCRIBING ERROR [None]
  - HEPATIC ENZYME INCREASED [None]
  - RENAL FAILURE CHRONIC [None]
